FAERS Safety Report 25176770 (Version 1)
Quarter: 2025Q2

REPORT INFORMATION
  Report Type: Report from Study
  Country: US (occurrence: US)
  Receive Date: 20250409
  Receipt Date: 20250409
  Transmission Date: 20250716
  Serious: Yes (Hospitalization, Other)
  Sender: GRIFOLS
  Company Number: US-IGSA-BIG0033998

PATIENT
  Age: 39 Year
  Sex: Female
  Weight: 108.8 kg

DRUGS (17)
  1. XEMBIFY [Suspect]
     Active Substance: HUMAN IMMUNOGLOBULIN G
     Indication: Primary immunodeficiency syndrome
     Route: 058
     Dates: start: 20250310, end: 20250317
  2. XEMBIFY [Suspect]
     Active Substance: HUMAN IMMUNOGLOBULIN G
     Dates: start: 20250310, end: 20250317
  3. HUMALOG [Concomitant]
     Active Substance: INSULIN LISPRO
  4. LYRIC [DIFENIDOL HYDROCHLORIDE] [Concomitant]
  5. PLAVIX [Concomitant]
     Active Substance: CLOPIDOGREL BISULFATE
  6. BELSOMRA [Concomitant]
     Active Substance: SUVOREXANT
  7. ACETAMINOPHEN\OXYCODONE HYDROCHLORIDE\OXYCODONE TEREPHTHALATE [Concomitant]
     Active Substance: ACETAMINOPHEN\OXYCODONE HYDROCHLORIDE\OXYCODONE TEREPHTHALATE
  8. ROPINIROLE [Concomitant]
     Active Substance: ROPINIROLE
  9. ASPIRIN [Concomitant]
     Active Substance: ASPIRIN
  10. DEPAKOTE [Concomitant]
     Active Substance: DIVALPROEX SODIUM
  11. LAMOTRIGINE [Concomitant]
     Active Substance: LAMOTRIGINE
  12. VRAYLAR [Concomitant]
     Active Substance: CARIPRAZINE
  13. TIZANIDINE HYDROCHLORIDE [Concomitant]
     Active Substance: TIZANIDINE HYDROCHLORIDE
  14. BELBUCA [Concomitant]
     Active Substance: BUPRENORPHINE HYDROCHLORIDE
  15. VITAMIN D NOS [Concomitant]
     Active Substance: CHOLECALCIFEROL\ERGOCALCIFEROL
  16. VITAMIN B12 [Concomitant]
     Active Substance: CYANOCOBALAMIN
  17. FUROSEMIDE [Concomitant]
     Active Substance: FUROSEMIDE

REACTIONS (1)
  - COVID-19 pneumonia [Not Recovered/Not Resolved]

NARRATIVE: CASE EVENT DATE: 20250310
